FAERS Safety Report 9861686 (Version 1)
Quarter: 2014Q1

REPORT INFORMATION
  Report Type: Spontaneous
  Country: US (occurrence: None)
  Receive Date: 20140131
  Receipt Date: 20140131
  Transmission Date: 20141002
  Serious: Yes (Other)
  Sender: FDA-Public Use
  Company Number: None

PATIENT
  Age: 57 Year
  Sex: Female
  Weight: 91.63 kg

DRUGS (4)
  1. ZYPREXA [Suspect]
     Indication: PANIC DISORDER
     Dosage: BY MOUTH
     Dates: start: 20131025, end: 20131209
  2. CITALOPRAM [Concomitant]
  3. HBR [Concomitant]
  4. CLONAZEPAM [Concomitant]

REACTIONS (1)
  - Fall [None]
